FAERS Safety Report 14083495 (Version 1)
Quarter: 2017Q4

REPORT INFORMATION
  Report Type: Spontaneous
  Country: ZA (occurrence: ZA)
  Receive Date: 20171013
  Receipt Date: 20171013
  Transmission Date: 20180321
  Serious: Yes (Hospitalization)
  Sender: FDA-Public Use
  Company Number: ZA-MYLANLABS-2017M1063063

PATIENT
  Age: 64 Year
  Sex: Male

DRUGS (5)
  1. MYLAN FUROSEMIDE 40 [Suspect]
     Active Substance: FUROSEMIDE
     Indication: DIURETIC THERAPY
     Dosage: 40 MG, UNK
  2. LANTUS [Concomitant]
     Active Substance: INSULIN GLARGINE
     Indication: BLOOD INSULIN ABNORMAL
     Dosage: 100 IU, UNK
  3. HUMALOG [Concomitant]
     Active Substance: INSULIN LISPRO
     Indication: BLOOD INSULIN ABNORMAL
     Dosage: 100 IU, UNK
  4. ECOTRIN [Concomitant]
     Active Substance: ASPIRIN
     Indication: ANTICOAGULANT THERAPY
     Dosage: 81 MG, UNK
  5. LANOXIN [Concomitant]
     Active Substance: DIGOXIN
     Indication: CARDIAC DISORDER
     Dosage: 0.25 MG, UNK

REACTIONS (1)
  - Procedural complication [Unknown]
